FAERS Safety Report 14549253 (Version 1)
Quarter: 2018Q1

REPORT INFORMATION
  Report Type: Report from Study
  Country: BR (occurrence: BR)
  Receive Date: 20180219
  Receipt Date: 20180219
  Transmission Date: 20180509
  Serious: Yes (Other)
  Sender: FDA-Public Use
  Company Number: PHHY2018BR023548

PATIENT
  Sex: Female
  Weight: 92 kg

DRUGS (2)
  1. METFORMIN [Suspect]
     Active Substance: METFORMIN HYDROCHLORIDE
     Indication: DIABETES MELLITUS
     Dosage: UNK UNK, IN THE MORNING, AFTERNOON AND AT NIGHT
     Route: 065
  2. GALVUS MET [Suspect]
     Active Substance: METFORMIN HYDROCHLORIDE\VILDAGLIPTIN
     Indication: DIABETES MELLITUS
     Dosage: (METFORMIN 1000 MG AND VILDAGLIPTIN UNKNOWN), AFTER LUNCH AND AFTER DINNER
     Route: 065

REACTIONS (5)
  - Agitation [Unknown]
  - Therapeutic response decreased [Unknown]
  - Anxiety [Recovering/Resolving]
  - Decreased appetite [Recovering/Resolving]
  - Diabetes mellitus inadequate control [Unknown]
